FAERS Safety Report 14909916 (Version 2)
Quarter: 2018Q2

REPORT INFORMATION
  Report Type: Spontaneous
  Country: AU (occurrence: AU)
  Receive Date: 20180517
  Receipt Date: 20180531
  Transmission Date: 20180711
  Serious: Yes (Other)
  Sender: FDA-Public Use
  Company Number: AU-MYLANLABS-2018M1032223

PATIENT
  Age: 65 Year
  Sex: Female

DRUGS (2)
  1. KEVTAM [Suspect]
     Active Substance: LEVETIRACETAM
     Dosage: 1000 MG, BID
  2. KEVTAM [Suspect]
     Active Substance: LEVETIRACETAM
     Indication: EPILEPSY
     Dosage: 500 MG, BID

REACTIONS (2)
  - Drug ineffective [Unknown]
  - No adverse event [Unknown]
